FAERS Safety Report 14029870 (Version 1)
Quarter: 2017Q3

REPORT INFORMATION
  Report Type: Spontaneous
  Country: US (occurrence: US)
  Receive Date: 20170930
  Receipt Date: 20170930
  Transmission Date: 20171128
  Serious: Yes (Hospitalization)
  Sender: FDA-Public Use
  Company Number: US-SA-2017SA112722

PATIENT
  Age: 55 Year
  Sex: Female

DRUGS (18)
  1. LISINOPRIL. [Concomitant]
     Active Substance: LISINOPRIL
  2. XANAX [Concomitant]
     Active Substance: ALPRAZOLAM
  3. CELEBREX [Concomitant]
     Active Substance: CELECOXIB
  4. PROGESTERONE. [Concomitant]
     Active Substance: PROGESTERONE
  5. MYRBETRIQ [Concomitant]
     Active Substance: MIRABEGRON
  6. LYRICA [Concomitant]
     Active Substance: PREGABALIN
  7. ALENDRONATE SODIUM. [Concomitant]
     Active Substance: ALENDRONATE SODIUM
  8. AMITIZA [Concomitant]
     Active Substance: LUBIPROSTONE
  9. LEVOTHYROXINE. [Concomitant]
     Active Substance: LEVOTHYROXINE
  10. SINGULAIR [Concomitant]
     Active Substance: MONTELUKAST SODIUM
  11. AMLODIPINE BESILATE [Concomitant]
     Active Substance: AMLODIPINE BESYLATE
     Route: 065
  12. AUBAGIO [Suspect]
     Active Substance: TERIFLUNOMIDE
     Indication: MULTIPLE SCLEROSIS
     Route: 048
     Dates: start: 20160510
  13. FERROUS SULFATE. [Concomitant]
     Active Substance: FERROUS SULFATE
  14. HEMOCYTE PLUS [Concomitant]
  15. TRAZODONE [Concomitant]
     Active Substance: TRAZODONE HYDROCHLORIDE
  16. FENTANYL. [Concomitant]
     Active Substance: FENTANYL
  17. FLOMAX [Concomitant]
     Active Substance: TAMSULOSIN HYDROCHLORIDE
  18. OMEPRAZOLE. [Concomitant]
     Active Substance: OMEPRAZOLE

REACTIONS (2)
  - Urinary tract infection [Unknown]
  - Renal failure [Unknown]
